FAERS Safety Report 7817350-9 (Version None)
Quarter: 2011Q4

REPORT INFORMATION
  Report Type: 
  Country: None (occurrence: None)
  Receive Date: 20111017
  Receipt Date: 20111004
  Transmission Date: 20120403
  Serious: Yes (Hospitalization, Other)
  Sender: FDA-Public Use
  Company Number: DE-ELI_LILLY_AND_COMPANY-DE201110000489

PATIENT
  Age: 81 Year
  Sex: Female

DRUGS (2)
  1. FORTEO [Suspect]
     Indication: OSTEOPOROSIS
     Dosage: UNK, QD
     Route: 058
     Dates: start: 20110920, end: 20110923
  2. ANALGESICS [Concomitant]

REACTIONS (5)
  - ABASIA [None]
  - HEADACHE [None]
  - HYPERHIDROSIS [None]
  - GENERAL PHYSICAL HEALTH DETERIORATION [None]
  - PERIPHERAL COLDNESS [None]
